FAERS Safety Report 10243260 (Version 1)
Quarter: 2014Q2

REPORT INFORMATION
  Report Type: Spontaneous
  Country: NL (occurrence: NL)
  Receive Date: 20140618
  Receipt Date: 20140618
  Transmission Date: 20141212
  Serious: Yes (Hospitalization)
  Sender: FDA-Public Use
  Company Number: NL-AMGEN INC.-NLDSP2012086089

PATIENT
  Age: 62 Year
  Sex: Male

DRUGS (1)
  1. NEULASTA [Suspect]
     Indication: PROPHYLAXIS
     Dosage: 6 MG, Q2WK
     Route: 058
     Dates: start: 20120906, end: 20121224

REACTIONS (1)
  - Pneumonia [Unknown]
